FAERS Safety Report 4286159-8 (Version None)
Quarter: 2004Q1

REPORT INFORMATION
  Report Type: 
  Country: None (occurrence: None)
  Receive Date: 20040204
  Receipt Date: 20040204
  Transmission Date: 20041129
  Serious: No
  Sender: FDA-Public Use
  Company Number: None

PATIENT
  Sex: Male

DRUGS (2)
  1. FLUPHENAZINE [Suspect]
     Indication: PSYCHOTIC DISORDER
     Dosage: 2.5 MG HS ORAL
     Route: 048
     Dates: start: 20011119, end: 20040203
  2. FLUPHENAZINE [Suspect]
     Indication: PSYCHOTIC DISORDER
     Dosage: 5 MG HS ORAL
     Route: 048
     Dates: start: 20011119, end: 20040203

REACTIONS (1)
  - WEIGHT INCREASED [None]
